FAERS Safety Report 6730103-8 (Version None)
Quarter: 2010Q2

REPORT INFORMATION
  Report Type: 
  Country: None (occurrence: None)
  Receive Date: 20100513
  Receipt Date: 20100430
  Transmission Date: 20101027
  Serious: Yes (Other)
  Sender: FDA-Public Use
  Company Number: 2010S1002843

PATIENT
  Age: 57 Year
  Sex: Female

DRUGS (3)
  1. PHOSPHOSODA FLAVOR NOT SPECIFIED [Suspect]
     Indication: COLONOSCOPY
     Dosage: 90 ML; TOTAL; PO
     Route: 048
     Dates: start: 20060213, end: 20060213
  2. DULCOLAX [Suspect]
     Indication: COLONOSCOPY
     Dosage: 4 DF; X1; PO
     Route: 048
     Dates: start: 20060213, end: 20060213
  3. LASIX [Concomitant]

REACTIONS (3)
  - ANAEMIA [None]
  - BLOOD CREATINE INCREASED [None]
  - RENAL DISORDER [None]
